FAERS Safety Report 5444192-4 (Version None)
Quarter: 2007Q3

REPORT INFORMATION
  Report Type: 
  Country: None (occurrence: None)
  Receive Date: 20070906
  Receipt Date: 20070829
  Transmission Date: 20080115
  Serious: Yes (Hospitalization, Other)
  Sender: FDA-Public Use
  Company Number: US-TYCO HEALTHCARE/MALLINCKRODT-T200700970

PATIENT

DRUGS (2)
  1. ACETAMINOPHEN AND OXYCODONE HCL [Suspect]
     Indication: ARTHRALGIA
     Dosage: 2 TABLETS EVERY 8 HOURS
     Route: 048
     Dates: start: 20020101
  2. PRILOSEC                           /00661201/ [Concomitant]
     Route: 048
     Dates: start: 19970101, end: 20060101

REACTIONS (5)
  - CHROMATURIA [None]
  - DIARRHOEA [None]
  - THROMBOSIS [None]
  - URINE OUTPUT DECREASED [None]
  - VOMITING [None]
